FAERS Safety Report 5212086-5 (Version None)
Quarter: 2007Q1

REPORT INFORMATION
  Report Type: 
  Country: None (occurrence: None)
  Receive Date: 20070118
  Receipt Date: 20070103
  Transmission Date: 20070707
  Serious: Yes (Death, Hospitalization)
  Sender: FDA-Public Use
  Company Number: US-AMGEN-US045051

PATIENT
  Sex: Female

DRUGS (4)
  1. ENBREL [Suspect]
     Indication: WEGENER'S GRANULOMATOSIS
     Route: 058
     Dates: start: 20000101
  2. CYTOXAN [Concomitant]
  3. PREDNISONE [Concomitant]
  4. FOSAMAX [Concomitant]

REACTIONS (2)
  - PROGRESSIVE MULTIFOCAL LEUKOENCEPHALOPATHY [None]
  - RENAL FAILURE [None]
